FAERS Safety Report 10219004 (Version 2)
Quarter: 2014Q2

REPORT INFORMATION
  Report Type: Spontaneous
  Country: JP (occurrence: JP)
  Receive Date: 20140605
  Receipt Date: 20140616
  Transmission Date: 20141212
  Serious: No
  Sender: FDA-Public Use
  Company Number: JP-NOVOPROD-411861

PATIENT
  Sex: Male
  Weight: 47 kg

DRUGS (4)
  1. VICTOZA HIKACHU INJECTION [Suspect]
     Indication: TYPE 2 DIABETES MELLITUS
     Dosage: 0.3 MG, QD
     Route: 058
     Dates: start: 20110621
  2. VICTOZA HIKACHU INJECTION [Suspect]
     Dosage: 0.6 MG, QD
     Route: 058
     Dates: start: 20110622
  3. DAONIL [Suspect]
     Indication: TYPE 2 DIABETES MELLITUS
     Dosage: 3.75 MG, QD
     Route: 048
  4. DAONIL [Suspect]
     Dosage: 1.25 MG
     Route: 048
     Dates: start: 20110628

REACTIONS (1)
  - Altered state of consciousness [Recovered/Resolved]
